FAERS Safety Report 23383941 (Version 1)
Quarter: 2024Q1

REPORT INFORMATION
  Report Type: Spontaneous
  Country: US (occurrence: None)
  Receive Date: 20240109
  Receipt Date: 20240109
  Transmission Date: 20240410
  Serious: Yes (Life-Threatening, Hospitalization)
  Sender: FDA-Public Use
  Company Number: None

PATIENT
  Age: 45 Year
  Sex: Female
  Weight: 73.94 kg

DRUGS (1)
  1. VYVGART [Suspect]
     Active Substance: EFGARTIGIMOD ALFA-FCAB
     Indication: Myasthenia gravis
     Dosage: OTHER FREQUENCY : WEEKLY FOR 4 WKS;?
     Route: 042
     Dates: start: 20231229

REACTIONS (4)
  - Infusion related reaction [None]
  - Rash [None]
  - Oropharyngeal discomfort [None]
  - Pulmonary embolism [None]

NARRATIVE: CASE EVENT DATE: 20231229
